FAERS Safety Report 8304250-3 (Version None)
Quarter: 2012Q2

REPORT INFORMATION
  Report Type: 
  Country: None (occurrence: None)
  Receive Date: 20120423
  Receipt Date: 20120409
  Transmission Date: 20120825
  Serious: Yes (Other)
  Sender: FDA-Public Use
  Company Number: PHEH2012US007162

PATIENT
  Sex: Female
  Weight: 64 kg

DRUGS (11)
  1. ILARIS [Suspect]
     Dosage: 180 MG, UNK
     Dates: start: 20120101, end: 20120402
  2. MULTIVITAMIN [Concomitant]
  3. ILARIS [Suspect]
     Indication: MUCKLE-WELLS SYNDROME
     Dosage: 150 MG, EVERY 6 WEEKS
     Route: 058
     Dates: start: 20120216
  4. PROGRAF [Concomitant]
     Dosage: 2 MG, BID
  5. FERROUS SULFATE TAB [Concomitant]
  6. FISH OIL [Concomitant]
  7. MYCOPHENOLIC ACID [Concomitant]
     Dosage: 250 MG, BID
  8. METOPROLOL TARTRATE [Concomitant]
     Dosage: 12.5 MG, UNK
  9. PREDNISONE TAB [Concomitant]
     Dosage: 2.5 MG, QD
  10. LEXAPRO [Concomitant]
     Dosage: 10 MG, QD
  11. NEXIUM [Concomitant]
     Dosage: 20 MG, BID

REACTIONS (8)
  - URTICARIA [None]
  - ARTHRALGIA [None]
  - CONDITION AGGRAVATED [None]
  - HEADACHE [None]
  - DRUG EFFECT DECREASED [None]
  - MUCKLE-WELLS SYNDROME [None]
  - INFLAMMATION [None]
  - RASH [None]
